FAERS Safety Report 25886271 (Version 1)
Quarter: 2025Q4

REPORT INFORMATION
  Report Type: Spontaneous
  Country: IQ (occurrence: IQ)
  Receive Date: 20251006
  Receipt Date: 20251006
  Transmission Date: 20260118
  Serious: Yes (Other)
  Sender: ASCENT PHARMACEUTICALS INC
  Company Number: IQ-ASCENT-2025ASLIT00231

PATIENT
  Age: 28 Year
  Sex: Male

DRUGS (1)
  1. IBUPROFEN [Suspect]
     Active Substance: IBUPROFEN
     Indication: Arthralgia
     Dosage: 3 TO 4 TIMES DAILY
     Route: 065

REACTIONS (6)
  - Cardiac aneurysm [Recovered/Resolved]
  - Acute myocardial infarction [Recovered/Resolved]
  - Behcet^s syndrome [Recovered/Resolved]
  - Drug abuse [Unknown]
  - Abdominal discomfort [Recovered/Resolved]
  - Self-medication [Unknown]
